FAERS Safety Report 5636933-8 (Version None)
Quarter: 2008Q1

REPORT INFORMATION
  Report Type: 
  Country: None (occurrence: None)
  Receive Date: 20080221
  Receipt Date: 20080212
  Transmission Date: 20080703
  Serious: Yes (Hospitalization)
  Sender: FDA-Public Use
  Company Number: 163-21880-08010572

PATIENT
  Age: 71 Year
  Sex: Male

DRUGS (5)
  1. REVLIMID [Suspect]
     Indication: MULTIPLE MYELOMA
     Dosage: 25 MG, 21/28, ORAL
     Route: 048
     Dates: start: 20060627, end: 20080129
  2. REVLIMID [Suspect]
  3. DEXAMETHASONE TAB [Concomitant]
  4. ARANESP [Concomitant]
  5. ASPIRIN [Concomitant]

REACTIONS (4)
  - IMMUNOSUPPRESSION [None]
  - INFLUENZA [None]
  - PNEUMONIA [None]
  - WHITE BLOOD CELL COUNT DECREASED [None]
